FAERS Safety Report 6333420-9 (Version None)
Quarter: 2009Q3

REPORT INFORMATION
  Report Type: 
  Country: None (occurrence: None)
  Receive Date: 20090828
  Receipt Date: 20090817
  Transmission Date: 20100115
  Serious: Yes (Hospitalization)
  Sender: FDA-Public Use
  Company Number: FR-ELI_LILLY_AND_COMPANY-FR200908003394

PATIENT
  Sex: Male

DRUGS (4)
  1. ZYPREXA [Suspect]
     Indication: PSYCHOTIC DISORDER
     Dosage: 40 MG, UNK
     Route: 048
     Dates: start: 20090703, end: 20090707
  2. ZYPREXA [Suspect]
     Dosage: 10 MG, DAILY (1/D)
     Route: 048
     Dates: start: 20090708, end: 20090720
  3. TERCIAN [Concomitant]
     Dosage: 75 MG, DAILY (1/D)
     Route: 048
     Dates: start: 20090703, end: 20090707
  4. TERCIAN [Concomitant]
     Dosage: 25 MG, DAILY (1/D)
     Route: 048
     Dates: start: 20090708, end: 20090720

REACTIONS (5)
  - ABDOMINAL PAIN UPPER [None]
  - CHOLESTASIS [None]
  - CYTOLYTIC HEPATITIS [None]
  - INFLUENZA [None]
  - OVERDOSE [None]
